FAERS Safety Report 11452022 (Version 1)
Quarter: 2015Q3

REPORT INFORMATION
  Report Type: Spontaneous
  Country: US (occurrence: US)
  Receive Date: 20150903
  Receipt Date: 20150903
  Transmission Date: 20151125
  Serious: No
  Sender: FDA-Public Use
  Company Number: US-ROCHE-1055757

PATIENT

DRUGS (2)
  1. COPEGUS [Suspect]
     Active Substance: RIBAVIRIN
     Indication: PRODUCT USED FOR UNKNOWN INDICATION
     Route: 065
  2. PEGASYS [Suspect]
     Active Substance: PEGINTERFERON ALFA-2A
     Indication: PRODUCT USED FOR UNKNOWN INDICATION
     Route: 065

REACTIONS (9)
  - Swelling face [Unknown]
  - Vomiting [Unknown]
  - Anaemia [Unknown]
  - Swelling [Unknown]
  - Oropharyngeal pain [Unknown]
  - Stomatitis [Unknown]
  - Rash [Unknown]
  - Asthenia [Unknown]
  - Headache [Unknown]
